FAERS Safety Report 5929749-6 (Version None)
Quarter: 2008Q4

REPORT INFORMATION
  Report Type: 
  Country: None (occurrence: None)
  Receive Date: 20081024
  Receipt Date: 20081021
  Transmission Date: 20090506
  Serious: Yes (Life-Threatening, Other)
  Sender: FDA-Public Use
  Company Number: GB-BRISTOL-MYERS SQUIBB COMPANY-14376743

PATIENT
  Age: 46 Year
  Sex: Female
  Weight: 69 kg

DRUGS (4)
  1. ARIPIPRAZOLE [Interacting]
     Indication: DEPRESSION
     Route: 048
     Dates: start: 20080801
  2. WARFARIN SODIUM [Suspect]
     Indication: ATRIAL FIBRILLATION
     Route: 048
     Dates: start: 20000601
  3. AMILORIDE HYDROCHLORIDE [Concomitant]
     Indication: FALLOT'S TETRALOGY
     Route: 048
     Dates: start: 20031101
  4. GLICLAZIDE [Concomitant]
     Indication: TYPE 2 DIABETES MELLITUS
     Route: 048
     Dates: start: 20031101

REACTIONS (2)
  - DRUG INTERACTION [None]
  - INTERNATIONAL NORMALISED RATIO INCREASED [None]
